FAERS Safety Report 11931726 (Version 2)
Quarter: 2016Q2

REPORT INFORMATION
  Report Type: Spontaneous
  Country: US (occurrence: US)
  Receive Date: 20160120
  Receipt Date: 20160412
  Transmission Date: 20160815
  Serious: No
  Sender: FDA-Public Use
  Company Number: US-INCYTE CORPORATION-2015IN004450

PATIENT
  Sex: Female
  Weight: 73.03 kg

DRUGS (8)
  1. JAKAFI [Suspect]
     Active Substance: RUXOLITINIB
     Dosage: 5 MG, BID
     Route: 048
     Dates: start: 20150604, end: 20151130
  2. OMEPRAZOLE. [Concomitant]
     Active Substance: OMEPRAZOLE
     Dosage: UNK
  3. TYLENOL [Concomitant]
     Active Substance: ACETAMINOPHEN
     Dosage: UNK
  4. SYNTHROID [Concomitant]
     Active Substance: LEVOTHYROXINE SODIUM
     Dosage: UNK
  5. FOLIC ACID. [Concomitant]
     Active Substance: FOLIC ACID
     Dosage: UNK
  6. JAKAFI [Suspect]
     Active Substance: RUXOLITINIB
     Indication: MYELOFIBROSIS
     Dosage: 5 MG, BID
     Route: 048
     Dates: start: 20150604
  7. WARFARIN [Concomitant]
     Active Substance: WARFARIN
     Dosage: UNK
  8. METOPROLOL. [Concomitant]
     Active Substance: METOPROLOL
     Dosage: UNK

REACTIONS (2)
  - Diarrhoea [Recovered/Resolved]
  - Nausea [Recovered/Resolved]

NARRATIVE: CASE EVENT DATE: 2015
